FAERS Safety Report 5191316-2 (Version None)
Quarter: 2006Q4

REPORT INFORMATION
  Report Type: 
  Country: None (occurrence: None)
  Receive Date: 20061219
  Receipt Date: 20061205
  Transmission Date: 20070319
  Serious: No
  Sender: FDA-Public Use
  Company Number: 2006-00918

PATIENT
  Age: 43 Year
  Sex: Male
  Weight: 69 kg

DRUGS (2)
  1. VELCADE [Suspect]
     Indication: MULTIPLE MYELOMA
     Dosage: 1.60 MG/M2, INTRAVENOUS
     Route: 042
     Dates: start: 20060117, end: 20060721
  2. DOXIL [Suspect]
     Indication: MULTIPLE MYELOMA
     Dosage: 30.00 MG/M2, INTRAVENOUS
     Route: 042
     Dates: start: 20060117, end: 20060721

REACTIONS (1)
  - CELLULITIS [None]
